FAERS Safety Report 5542469-5 (Version None)
Quarter: 2007Q4

REPORT INFORMATION
  Report Type: 
  Country: None (occurrence: None)
  Receive Date: 20071210
  Receipt Date: 20071205
  Transmission Date: 20080405
  Serious: Yes (Life-Threatening, Hospitalization)
  Sender: FDA-Public Use
  Company Number: JP-SANOFI-SYNTHELABO-F01200701614

PATIENT
  Sex: Male
  Weight: 73.9 kg

DRUGS (13)
  1. RABEPRAZOLE SODIUM [Concomitant]
     Dosage: 10 MG
     Route: 048
     Dates: start: 20070806, end: 20070816
  2. GASMOTIN [Concomitant]
     Route: 048
     Dates: start: 20070806, end: 20070816
  3. NAUZELIN [Concomitant]
     Route: 048
     Dates: start: 20070727, end: 20070816
  4. FAMOTIDINE [Concomitant]
     Route: 048
     Dates: start: 20070612, end: 20070805
  5. CLARITIN [Concomitant]
     Dosage: 10 MG
     Route: 048
     Dates: start: 20070322, end: 20070521
  6. ZYRTEC [Concomitant]
     Dosage: 10 MG
     Route: 048
     Dates: start: 20070322, end: 20070816
  7. DEPAKENE [Concomitant]
     Route: 048
     Dates: end: 20070816
  8. PRAVASTATIN SODIUM [Concomitant]
     Indication: HYPERLIPIDAEMIA
     Dosage: 10 MG
     Route: 048
     Dates: end: 20070816
  9. TRICHLORMETHIAZIDE [Concomitant]
     Indication: HYPERTENSION
     Dosage: 2 MG
     Route: 048
     Dates: start: 20060525, end: 20070816
  10. DIOVAN [Concomitant]
     Indication: HYPERTENSION
     Route: 048
     Dates: start: 20070308, end: 20070816
  11. NORVASC [Concomitant]
     Indication: HYPERTENSION
     Route: 048
     Dates: start: 20060410, end: 20070816
  12. CLOPIDOGREL [Suspect]
     Indication: CEREBRAL ISCHAEMIA
     Route: 048
     Dates: start: 20070308, end: 20070816
  13. OMEPRAL [Concomitant]
     Dosage: INJECTION (NOS)
     Dates: start: 20070816, end: 20070827

REACTIONS (3)
  - DEHYDRATION [None]
  - SMALL INTESTINE CARCINOMA [None]
  - VOMITING [None]
